FAERS Safety Report 8249057-0 (Version None)
Quarter: 2012Q1

REPORT INFORMATION
  Report Type: 
  Country: None (occurrence: None)
  Receive Date: 20120327
  Receipt Date: 20120314
  Transmission Date: 20120608
  Serious: Yes (Hospitalization, Other)
  Sender: FDA-Public Use
  Company Number: DSJ-2012-05183

PATIENT
  Age: 6 Decade
  Sex: Male

DRUGS (1)
  1. BENICAR HCT [Suspect]
     Indication: HYPERTENSION
     Dosage: 0/12.5 MG (1 IN 1 D),PER ORAL
     Route: 048

REACTIONS (4)
  - MALIGNANT NEOPLASM OF EYE [None]
  - CALCULUS URINARY [None]
  - CONDITION AGGRAVATED [None]
  - KIDNEY INFECTION [None]
